FAERS Safety Report 4349187-X (Version None)
Quarter: 2004Q2

REPORT INFORMATION
  Report Type: 
  Country: None (occurrence: None)
  Receive Date: 20040428
  Receipt Date: 20030904
  Transmission Date: 20050107
  Serious: Yes (Other)
  Sender: FDA-Public Use
  Company Number: PHBS2003JP09605

PATIENT
  Age: 78 Year
  Sex: Male

DRUGS (9)
  1. LAMISIL [Suspect]
     Indication: NAIL TINEA
     Dosage: 125 MG/D
     Route: 048
     Dates: start: 20030627, end: 20030903
  2. LIPITOR [Suspect]
     Indication: HYPERCHOLESTEROLAEMIA
     Dosage: 10 MG/D
     Route: 048
     Dates: start: 20030424, end: 20030903
  3. RIMATIL [Suspect]
     Indication: MUSCULOSKELETAL PAIN
     Dosage: 100 MG/D
     Route: 048
     Dates: start: 20021125
  4. DIOVAN [Concomitant]
     Indication: BLOOD PRESSURE INCREASED
     Dosage: 40 MG/D
     Route: 048
  5. DEPAS [Concomitant]
     Route: 048
  6. ACINON [Concomitant]
     Dosage: 75 MG/D
     Route: 048
  7. PREDONINE [Concomitant]
     Indication: MUSCULOSKELETAL PAIN
     Dosage: 5 MG/D
     Route: 048
  8. HALCION [Concomitant]
     Route: 048
  9. ADALAT [Concomitant]
     Indication: BLOOD PRESSURE INCREASED
     Dosage: 20 MG/D
     Route: 048

REACTIONS (1)
  - RHABDOMYOLYSIS [None]
